FAERS Safety Report 18147912 (Version 1)
Quarter: 2020Q3

REPORT INFORMATION
  Report Type: Report from Study
  Country: US (occurrence: US)
  Receive Date: 20200813
  Receipt Date: 20200813
  Transmission Date: 20201103
  Serious: Yes (Other)
  Sender: FDA-Public Use
  Company Number: US-JNJFOC-20200811123

PATIENT
  Sex: Male

DRUGS (2)
  1. STELARA [Suspect]
     Active Substance: USTEKINUMAB
  2. STELARA [Suspect]
     Active Substance: USTEKINUMAB
     Indication: PSORIASIS
     Dosage: DOSE: 45 MG SYRINGE DAY 0, THEN 4 WEEKS LATER, THEN EVERY 12 WEEKS THEREAFTER
     Route: 058
     Dates: start: 20200803

REACTIONS (1)
  - COVID-19 [Unknown]
